FAERS Safety Report 4844244-3 (Version None)
Quarter: 2005Q4

REPORT INFORMATION
  Report Type: 
  Country: None (occurrence: None)
  Receive Date: 20051202
  Receipt Date: 20051118
  Transmission Date: 20060501
  Serious: Yes (Hospitalization)
  Sender: FDA-Public Use
  Company Number: HK-AVENTIS-200520150GDDC

PATIENT
  Age: 31 Year
  Sex: Female
  Weight: 45.7 kg

DRUGS (5)
  1. LANTUS [Suspect]
     Indication: DIABETES MELLITUS
     Dosage: DOSE UNIT: UNITS
     Route: 058
     Dates: start: 20041001
  2. OPTIPEN (INSULIN PUMP) [Suspect]
  3. NOVORAPID [Concomitant]
     Indication: DIABETES MELLITUS
     Dosage: DOSE UNIT: UNITS
     Route: 058
     Dates: start: 20051001
  4. NOVORAPID [Concomitant]
     Dosage: DOSE: 7 U LUNCH
     Route: 058
     Dates: start: 20051001
  5. NOVORAPID [Concomitant]
     Dosage: DOSE: 5 U DINNER
     Route: 058
     Dates: start: 20051001

REACTIONS (3)
  - DRUG HYPERSENSITIVITY [None]
  - ERYTHEMA MULTIFORME [None]
  - PRURITUS [None]
